FAERS Safety Report 8564570-4 (Version None)
Quarter: 2012Q3

REPORT INFORMATION
  Report Type: 
  Country: None (occurrence: None)
  Receive Date: 20120803
  Receipt Date: 20120801
  Transmission Date: 20120928
  Serious: Yes (Other)
  Sender: FDA-Public Use
  Company Number: US-PFIZER INC-2012187740

PATIENT
  Sex: Female
  Weight: 84.807 kg

DRUGS (4)
  1. SIMVASTATIN [Concomitant]
     Indication: BLOOD CHOLESTEROL INCREASED
     Dosage: UNK
  2. CHANTIX [Suspect]
     Indication: SMOKING CESSATION THERAPY
     Dosage: 0.5 MG, 1X/DAY
     Route: 048
     Dates: start: 20110901, end: 20111001
  3. LISINOPRIL [Concomitant]
     Indication: HYPERTENSION
     Dosage: UNK
  4. WELLBUTRIN [Concomitant]
     Dosage: UNK, 2X/DAY

REACTIONS (7)
  - GAIT DISTURBANCE [None]
  - RIB FRACTURE [None]
  - CARDIAC DISORDER [None]
  - ARTHROPATHY [None]
  - PATIENT-DEVICE INCOMPATIBILITY [None]
  - CHEST PAIN [None]
  - ATRIOVENTRICULAR BLOCK [None]
